FAERS Safety Report 16803372 (Version 2)
Quarter: 2019Q4

REPORT INFORMATION
  Report Type: Spontaneous
  Country: ES (occurrence: ES)
  Receive Date: 20190913
  Receipt Date: 20191210
  Transmission Date: 20200122
  Serious: No
  Sender: FDA-Public Use
  Company Number: ES-ROCHE-2405077

PATIENT
  Sex: Female

DRUGS (2)
  1. OMALIZUMAB. [Suspect]
     Active Substance: OMALIZUMAB
     Indication: ASTHMA
     Route: 058
     Dates: start: 20190704
  2. OMALIZUMAB. [Suspect]
     Active Substance: OMALIZUMAB
     Route: 058
     Dates: start: 20190801

REACTIONS (12)
  - Abdominal pain [Unknown]
  - Rash [Recovered/Resolved]
  - Hypotension [Unknown]
  - Bacterial test positive [Unknown]
  - Back pain [Unknown]
  - Urinary tract infection [Unknown]
  - Vulvovaginal pruritus [Unknown]
  - Red blood cells urine positive [Unknown]
  - Renal colic [Unknown]
  - Conjunctivitis [Unknown]
  - Abdominal discomfort [Recovered/Resolved]
  - Fungal infection [Unknown]
